FAERS Safety Report 18548273 (Version 1)
Quarter: 2020Q4

REPORT INFORMATION
  Report Type: Spontaneous
  Country: NL (occurrence: NL)
  Receive Date: 20201126
  Receipt Date: 20201126
  Transmission Date: 20210114
  Serious: Yes (Hospitalization, Disabling)
  Sender: FDA-Public Use
  Company Number: NL-009507513-2011NLD010598

PATIENT
  Age: 28 Year
  Sex: Male
  Weight: 84 kg

DRUGS (1)
  1. PROPECIA [Suspect]
     Active Substance: FINASTERIDE
     Indication: PROPHYLAXIS
     Dosage: ONCE PER DAY 1 UNIT, MEDICATION PRESCRIBED BY DOCTOR: YES
     Dates: start: 201505, end: 20160501

REACTIONS (7)
  - Physical disability [Recovering/Resolving]
  - Insomnia [Not Recovered/Not Resolved]
  - Anxiety [Recovering/Resolving]
  - Mental disorder [Recovering/Resolving]
  - Suicidal ideation [Recovering/Resolving]
  - Drug withdrawal syndrome [Recovering/Resolving]
  - Feeling abnormal [Recovering/Resolving]

NARRATIVE: CASE EVENT DATE: 20160501
